FAERS Safety Report 9203439 (Version 1)
Quarter: 2013Q1

REPORT INFORMATION
  Report Type: Spontaneous
  Country: US (occurrence: None)
  Receive Date: 20130329
  Receipt Date: 20130329
  Transmission Date: 20140127
  Serious: Yes (Hospitalization)
  Sender: FDA-Public Use
  Company Number: None

PATIENT
  Sex: Male
  Weight: 9.3 kg

DRUGS (16)
  1. CARBOPLATIN [Suspect]
  2. CISPLATIN [Suspect]
  3. CYCLOPHOSPHAMIDE [Suspect]
  4. ETOPOSIDE (VP-16) [Suspect]
  5. METHOTREXATE [Suspect]
  6. THIOTEPA [Suspect]
  7. VINCRISTINE SULFATE [Suspect]
  8. ALOXI [Concomitant]
  9. EMEND [Concomitant]
  10. FLUCONAZOLE [Concomitant]
  11. IVIG [Concomitant]
  12. LORTAB [Concomitant]
  13. POTASSIUM [Concomitant]
  14. PREVACID [Concomitant]
  15. REGLAN [Concomitant]
  16. VISTARIL [Concomitant]

REACTIONS (4)
  - Sepsis [None]
  - Multi-organ failure [None]
  - Pulmonary haemorrhage [None]
  - Bradycardia [None]
